FAERS Safety Report 8518647-X (Version None)
Quarter: 2012Q3

REPORT INFORMATION
  Report Type: 
  Country: None (occurrence: None)
  Receive Date: 20120718
  Receipt Date: 20120717
  Transmission Date: 20120928
  Serious: No
  Sender: FDA-Public Use
  Company Number: US-PFIZER INC-2008075080

PATIENT
  Sex: Female
  Weight: 53.07 kg

DRUGS (2)
  1. CHANTIX [Suspect]
     Indication: TOBACCO ABUSE
     Dosage: UNK
     Dates: end: 20090101
  2. CHANTIX [Suspect]
     Indication: SMOKING CESSATION THERAPY
     Dosage: UNK
     Route: 048
     Dates: start: 20080501, end: 20080601

REACTIONS (3)
  - TOBACCO USER [None]
  - DRUG INEFFECTIVE [None]
  - RASH MACULAR [None]
